FAERS Safety Report 4425405-4 (Version None)
Quarter: 2004Q3

REPORT INFORMATION
  Report Type: 
  Country: None (occurrence: None)
  Receive Date: 20040813
  Receipt Date: 20040624
  Transmission Date: 20050211
  Serious: Yes (Other)
  Sender: FDA-Public Use
  Company Number: SE-GLAXOSMITHKLINE-B0341308A

PATIENT
  Age: 60 Year
  Sex: Male

DRUGS (3)
  1. LAMICTAL [Suspect]
     Indication: EPILEPSY
     Route: 048
     Dates: end: 20030723
  2. IKTORIVIL [Concomitant]
     Indication: EPILEPSY
  3. TEGRETOL [Concomitant]
     Indication: EPILEPSY

REACTIONS (5)
  - CUTANEOUS LUPUS ERYTHEMATOSUS [None]
  - ERYTHEMA MULTIFORME [None]
  - KOEBNER PHENOMENON [None]
  - SKIN LESION [None]
  - STEVENS-JOHNSON SYNDROME [None]
